FAERS Safety Report 23233278 (Version 5)
Quarter: 2024Q4

REPORT INFORMATION
  Report Type: Report from Study
  Country: DE (occurrence: DE)
  Receive Date: 20231128
  Receipt Date: 20241202
  Transmission Date: 20250115
  Serious: Yes (Other)
  Sender: UCB
  Company Number: DE-UCBSA-2023042533

PATIENT
  Sex: Female
  Weight: 79 kg

DRUGS (2)
  1. BIMEKIZUMAB [Suspect]
     Active Substance: BIMEKIZUMAB
     Indication: Psoriasis
     Dosage: 320 MILLIGRAM, EV 4 WEEKS
     Route: 058
     Dates: start: 20230725, end: 20240619
  2. BIMEKIZUMAB [Suspect]
     Active Substance: BIMEKIZUMAB
     Dosage: 320 MILLIGRAM, EV 4 WEEKS
     Route: 058
     Dates: start: 20240628

REACTIONS (8)
  - Abscess jaw [Recovered/Resolved]
  - Pain in jaw [Recovered/Resolved]
  - Swelling face [Recovering/Resolving]
  - Abscess drainage [Unknown]
  - Dental caries [Unknown]
  - Arthralgia [Recovered/Resolved]
  - Tonsillitis streptococcal [Recovered/Resolved]
  - Psoriasis [Recovered/Resolved]

NARRATIVE: CASE EVENT DATE: 20230101
